FAERS Safety Report 17584614 (Version 2)
Quarter: 2020Q2

REPORT INFORMATION
  Report Type: Report from Study
  Country: IN (occurrence: IN)
  Receive Date: 20200326
  Receipt Date: 20200505
  Transmission Date: 20200713
  Serious: Yes (Death, Hospitalization)
  Sender: FDA-Public Use
  Company Number: NVSC2020IN083252

PATIENT
  Age: 71 Year
  Sex: Male
  Weight: 62 kg

DRUGS (1)
  1. REVOLADE [Suspect]
     Active Substance: ELTROMBOPAG
     Indication: APLASTIC ANAEMIA
     Dosage: 100 MG, QD
     Route: 065
     Dates: start: 20200306

REACTIONS (5)
  - Disease progression [Fatal]
  - Pruritus [Unknown]
  - Pyrexia [Unknown]
  - Aplastic anaemia [Fatal]
  - Infection [Unknown]

NARRATIVE: CASE EVENT DATE: 20200328
